FAERS Safety Report 5792248-9 (Version None)
Quarter: 2008Q2

REPORT INFORMATION
  Report Type: 
  Country: None (occurrence: None)
  Receive Date: 20080626
  Receipt Date: 20080307
  Transmission Date: 20081010
  Serious: No
  Sender: FDA-Public Use
  Company Number: US-ASTRAZENECA-2008UW04804

PATIENT
  Age: 65 Year
  Sex: Female
  Weight: 49.9 kg

DRUGS (1)
  1. PULMICORT RESPULES [Suspect]
     Indication: ASTHMA
     Dosage: 0.25, 0.5 MG/DL
     Route: 055
     Dates: start: 20080201

REACTIONS (1)
  - HAEMOPTYSIS [None]
